FAERS Safety Report 17941841 (Version 3)
Quarter: 2020Q4

REPORT INFORMATION
  Report Type: Spontaneous
  Country: US (occurrence: US)
  Receive Date: 20200625
  Receipt Date: 20201125
  Transmission Date: 20210113
  Serious: No
  Sender: FDA-Public Use
  Company Number: US-SA-2020SA159887

PATIENT

DRUGS (1)
  1. DUPIXENT [Suspect]
     Active Substance: DUPILUMAB
     Indication: NASAL POLYPS
     Dosage: 300 MG, QOW
     Route: 058
     Dates: start: 20191114

REACTIONS (7)
  - Eye infection [Unknown]
  - Pyrexia [Unknown]
  - Keratitis [Unknown]
  - Pain [Unknown]
  - Folliculitis [Recovered/Resolved]
  - Dry eye [Unknown]
  - Swelling [Unknown]

NARRATIVE: CASE EVENT DATE: 2020
